FAERS Safety Report 5252566-X (Version None)
Quarter: 2007Q1

REPORT INFORMATION
  Report Type: 
  Country: None (occurrence: None)
  Receive Date: 20070227
  Receipt Date: 20070227
  Transmission Date: 20070707
  Serious: No
  Sender: FDA-Public Use
  Company Number: None

PATIENT
  Sex: Male
  Weight: 85.7 kg

DRUGS (11)
  1. CHANTIX [Suspect]
     Indication: NICOTINE DEPENDENCE
     Dosage: 1.0 MG  BID  INJ
     Dates: start: 20070118, end: 20070217
  2. ALBUTEROL [Concomitant]
  3. ADVAIR DISKUS 100/50 [Concomitant]
  4. MICINEX [Concomitant]
  5. SPIRIVA [Concomitant]
  6. NASONEX [Concomitant]
  7. RHINOCORT [Concomitant]
  8. ASTELIN [Concomitant]
  9. TRAZODONE HCL [Concomitant]
  10. FLUOXETINE [Concomitant]
  11. CHLOROQUINE [Concomitant]

REACTIONS (2)
  - DRUG DOSE OMISSION [None]
  - DRUG WITHDRAWAL SYNDROME [None]
